FAERS Safety Report 6011154-8 (Version None)
Quarter: 2008Q4

REPORT INFORMATION
  Report Type: 
  Country: None (occurrence: None)
  Receive Date: 20081216
  Receipt Date: 20081202
  Transmission Date: 20090506
  Serious: Yes (Hospitalization, Other)
  Sender: FDA-Public Use
  Company Number: 233844J08USA

PATIENT
  Age: 64 Year
  Sex: Male

DRUGS (2)
  1. REBIF [Suspect]
     Indication: MULTIPLE SCLEROSIS
     Dosage: 44 MCG,3 IN 1 WEEKS, SUBCUTANEOUS
     Route: 058
     Dates: start: 20030808, end: 20080401
  2. LASIX (FUROSEMIDE /00032601/) [Concomitant]

REACTIONS (9)
  - CYSTITIS [None]
  - DEHYDRATION [None]
  - EATING DISORDER [None]
  - POST PROCEDURAL COMPLICATION [None]
  - PROSTATOMEGALY [None]
  - RENAL FAILURE [None]
  - THROMBOSIS [None]
  - TRIGEMINAL NEURALGIA [None]
  - VOMITING [None]
